FAERS Safety Report 7220942-1 (Version None)
Quarter: 2011Q1

REPORT INFORMATION
  Report Type: 
  Country: None (occurrence: None)
  Receive Date: 20110112
  Receipt Date: 20110103
  Transmission Date: 20110831
  Serious: Yes (Hospitalization)
  Sender: FDA-Public Use
  Company Number: US-ELI_LILLY_AND_COMPANY-US201007005364

PATIENT
  Sex: Female
  Weight: 57 kg

DRUGS (14)
  1. NEXIUM [Concomitant]
     Dosage: UNK, UNKNOWN
     Route: 065
  2. FORTICAL /00371903/ [Concomitant]
     Dosage: UNK, UNKNOWN
     Route: 065
  3. PERCOCET [Concomitant]
     Dosage: UNK, UNKNOWN
     Route: 065
  4. MIRAPEX [Concomitant]
     Dosage: UNK, UNKNOWN
     Route: 065
  5. ADVAIR [Concomitant]
     Dosage: UNK, UNKNOWN
     Route: 065
  6. PROTONIX [Concomitant]
     Dosage: UNK, UNKNOWN
     Route: 065
  7. ATIVAN [Concomitant]
     Dosage: UNK, UNKNOWN
     Route: 065
  8. BYSTOLIC [Concomitant]
     Dosage: UNK, UNKNOWN
     Route: 065
  9. ULTRAM [Concomitant]
     Dosage: UNK, UNKNOWN
     Route: 065
  10. SIMVASTATIN [Concomitant]
     Dosage: UNK, UNKNOWN
     Route: 065
  11. NORCO [Concomitant]
     Dosage: UNK, UNKNOWN
     Route: 065
  12. FORTEO [Suspect]
     Indication: OSTEOPOROSIS
     Dosage: 20 UG, DAILY (1/D)
     Route: 065
     Dates: start: 20100805
  13. FENTANYL CITRATE [Concomitant]
     Dosage: UNK, UNKNOWN
     Route: 065
  14. PROVENTIL /USA/ [Concomitant]

REACTIONS (8)
  - DRUG DOSE OMISSION [None]
  - HYPOKINESIA [None]
  - INJURY ASSOCIATED WITH DEVICE [None]
  - INJECTION SITE PAIN [None]
  - LOBAR PNEUMONIA [None]
  - MENTAL STATUS CHANGES [None]
  - PAIN [None]
  - INJECTION SITE HAEMORRHAGE [None]
